FAERS Safety Report 5218309-0 (Version None)
Quarter: 2006Q4

REPORT INFORMATION
  Report Type: 
  Country: None (occurrence: None)
  Receive Date: 20061130
  Receipt Date: 20060609
  Transmission Date: 20070319
  Serious: Yes (Hospitalization)
  Sender: FDA-Public Use
  Company Number: US200603002984

PATIENT
  Age: 57 Year
  Sex: Male

DRUGS (3)
  1. ZYPREXA ZYDIS [Suspect]
     Dates: start: 20030501
  2. PLENDIL /SWE/(FELODIPINE) [Concomitant]
  3. VALPROIC ACID [Concomitant]

REACTIONS (3)
  - ANXIETY [None]
  - DIABETES MELLITUS [None]
  - METABOLIC DISORDER [None]
